FAERS Safety Report 11928031 (Version 1)
Quarter: 2016Q1

REPORT INFORMATION
  Report Type: Spontaneous
  Country: US (occurrence: US)
  Receive Date: 20160119
  Receipt Date: 20160119
  Transmission Date: 20160526
  Serious: Yes (Other)
  Sender: FDA-Public Use
  Company Number: US-BAYER-2016-007079

PATIENT
  Age: 60 Year
  Sex: Female

DRUGS (2)
  1. CLIMARA [Suspect]
     Active Substance: ESTRADIOL
     Indication: HORMONE REPLACEMENT THERAPY
     Dosage: 0.0125 MG TO 0.0375 MG
     Route: 062
     Dates: start: 201107, end: 201111
  2. CLIMARA [Suspect]
     Active Substance: ESTRADIOL
     Indication: HORMONE REPLACEMENT THERAPY
     Dosage: UNK
     Route: 062

REACTIONS (14)
  - Peritonitis [None]
  - Vaginal haemorrhage [None]
  - Uterine leiomyoma [Recovered/Resolved]
  - Ureteric injury [None]
  - Infection [None]
  - Disability [None]
  - Gastrointestinal disorder postoperative [None]
  - Nephropathy [None]
  - Urinary ascites [None]
  - Abdominal adhesions [None]
  - Cellulitis [None]
  - Fungal infection [None]
  - Genital haemorrhage [None]
  - Burning sensation [Not Recovered/Not Resolved]

NARRATIVE: CASE EVENT DATE: 201111
